FAERS Safety Report 6992833-2 (Version None)
Quarter: 2010Q3

REPORT INFORMATION
  Report Type: 
  Country: None (occurrence: None)
  Receive Date: 20100917
  Receipt Date: 20100910
  Transmission Date: 20110219
  Serious: Yes (Other)
  Sender: FDA-Public Use
  Company Number: A0881509A

PATIENT

DRUGS (2)
  1. LOVAZA [Suspect]
     Route: 065
  2. HMG CO-A REDUCTASE INHIBITOR [Concomitant]

REACTIONS (1)
  - HEPATIC ENZYME INCREASED [None]
